FAERS Safety Report 8826529 (Version 1)
Quarter: 2012Q4

REPORT INFORMATION
  Report Type: 
  Country: AU (occurrence: AU)
  Receive Date: 20121005
  Receipt Date: 20121005
  Transmission Date: 20130627
  Serious: Yes (Other)
  Sender: FDA-Public Use
  Company Number: AU-ARROW-2012-16871

PATIENT
  Age: 54 Year
  Sex: Female

DRUGS (1)
  1. DOXYCYCLINE [Suspect]
     Indication: PRODUCT USED FOR UNKNOWN INDICATION
     Dosage: 100 mg daily (^therapy duration 2 days^)
     Route: 048
     Dates: start: 20120918

REACTIONS (7)
  - Choking [Unknown]
  - Dyspnoea [Unknown]
  - Arthralgia [Unknown]
  - Rash [Unknown]
  - Joint swelling [Unknown]
  - Oedema peripheral [Unknown]
  - Pain in extremity [Unknown]
